FAERS Safety Report 6694447-0 (Version None)
Quarter: 2010Q2

REPORT INFORMATION
  Report Type: 
  Country: None (occurrence: None)
  Receive Date: 20100421
  Receipt Date: 20100406
  Transmission Date: 20101027
  Serious: Yes (Hospitalization)
  Sender: FDA-Public Use
  Company Number: FKO201000132

PATIENT
  Age: 48 Year
  Sex: Male

DRUGS (4)
  1. CARBOPLATIN [Suspect]
     Indication: NON-SMALL CELL LUNG CANCER STAGE IIIA
     Dosage: DOSED TO AREA UNDER THE CURVE = 5, DAY 1, INTRAVENOUS (NOT OTHERWISE SPECIFIED)
     Route: 042
  2. GEMCITABINE [Suspect]
     Indication: NON-SMALL CELL LUNG CANCER STAGE IIIA
     Dosage: ON DAYS 1 AND 8 EVERY 3 WEEKS, INTRAVENOUS (NOT OTHERWISE SPECIFIED)
     Route: 042
  3. PREDNISOLONE [Concomitant]
  4. HYDROCORTISONE (HYDROCORTISONE) (HYDROCORTISONE) [Concomitant]

REACTIONS (6)
  - CONDITION AGGRAVATED [None]
  - HYPERTENSION [None]
  - MUCOSAL HAEMORRHAGE [None]
  - THROMBOCYTOPENIA [None]
  - THROMBOTIC THROMBOCYTOPENIC PURPURA [None]
  - TRAUMATIC HAEMATOMA [None]
